FAERS Safety Report 5369952-X (Version None)
Quarter: 2007Q2

REPORT INFORMATION
  Report Type: 
  Country: None (occurrence: None)
  Receive Date: 20070621
  Receipt Date: 20070619
  Transmission Date: 20071010
  Serious: Yes (Death, Hospitalization, Other)
  Sender: FDA-Public Use
  Company Number: LTI2007A00135

PATIENT
  Age: 50 Year
  Sex: Female

DRUGS (1)
  1. ENANTONE LP            (LEUPROLIDE ACETATE) [Suspect]
     Indication: ENDOMETRIOSIS
     Dosage: 3.75 MG (3.75 MG, 1 IN 1 M); INJECTION
     Dates: start: 20070101, end: 20070601

REACTIONS (1)
  - CARDIAC ARREST [None]
